FAERS Safety Report 4340335-4 (Version None)
Quarter: 2004Q2

REPORT INFORMATION
  Report Type: 
  Country: None (occurrence: None)
  Receive Date: 20040412
  Receipt Date: 20040330
  Transmission Date: 20050107
  Serious: Yes (Hospitalization)
  Sender: FDA-Public Use
  Company Number: US071244

PATIENT
  Age: 42 Year
  Sex: Female

DRUGS (4)
  1. STEMGEN [Suspect]
     Indication: PERIPHERAL BLOOD STEM CELL APHERESIS
     Dosage: 20 MG/KG, 1 IN 1 DAYS, SC
     Route: 058
     Dates: start: 20030601, end: 20030604
  2. NEUPOGEN [Suspect]
     Indication: PERIPHERAL BLOOD STEM CELL APHERESIS
     Dosage: 5 MG/KG, 1 IN 1 DAYS
     Dates: start: 20030601, end: 20030604
  3. ALPRAZOLAM [Suspect]
     Dates: start: 20030501, end: 20030605
  4. CETIRIZINE HCL [Suspect]
     Dates: start: 20030530, end: 20030608

REACTIONS (2)
  - DYSPNOEA EXERTIONAL [None]
  - LETHARGY [None]
